FAERS Safety Report 7443480-X (Version None)
Quarter: 2011Q2

REPORT INFORMATION
  Report Type: 
  Country: None (occurrence: None)
  Receive Date: 20110428
  Receipt Date: 20110426
  Transmission Date: 20111010
  Serious: Yes (Death, Other)
  Sender: FDA-Public Use
  Company Number: VE-PFIZER INC-2011089917

PATIENT
  Age: 69 Year
  Sex: Female

DRUGS (2)
  1. ZANIDIP [Concomitant]
     Dosage: UNK
  2. CADUET [Suspect]
     Indication: HYPERTENSION
     Route: 048

REACTIONS (2)
  - LUNG NEOPLASM MALIGNANT [None]
  - METASTASIS [None]
